FAERS Safety Report 12632246 (Version 2)
Quarter: 2016Q3

REPORT INFORMATION
  Report Type: Spontaneous
  Country: US (occurrence: US)
  Receive Date: 20160808
  Receipt Date: 20160808
  Transmission Date: 20161109
  Serious: No
  Sender: FDA-Public Use
  Company Number: US-BEH-2016062241

PATIENT
  Sex: Female
  Weight: 76 kg

DRUGS (20)
  1. HIZENTRA [Suspect]
     Active Substance: HUMAN IMMUNOGLOBULIN G
     Indication: IMMUNODEFICIENCY COMMON VARIABLE
     Route: 058
     Dates: start: 20140829
  2. EPIPEN [Concomitant]
     Active Substance: EPINEPHRINE
  3. LIDOCAINE. [Concomitant]
     Active Substance: LIDOCAINE
  4. FLONASE [Concomitant]
     Active Substance: FLUTICASONE PROPIONATE
  5. DICLOFENAC [Concomitant]
     Active Substance: DICLOFENAC
  6. SPIRIVA [Concomitant]
     Active Substance: TIOTROPIUM BROMIDE MONOHYDRATE
  7. AZITHROMYCIN ANHYDROUS. [Concomitant]
     Active Substance: AZITHROMYCIN ANHYDROUS
  8. VITAMINE D [Concomitant]
  9. SYMBICORT [Concomitant]
     Active Substance: BUDESONIDE\FORMOTEROL FUMARATE DIHYDRATE
  10. ZYRTEC [Concomitant]
     Active Substance: CETIRIZINE HYDROCHLORIDE
  11. MULTIVITAMIN [Concomitant]
     Active Substance: VITAMINS
  12. ACETAMINOPHEN. [Concomitant]
     Active Substance: ACETAMINOPHEN
  13. XOLAIR [Concomitant]
     Active Substance: OMALIZUMAB
  14. IPRATROPIUM [Concomitant]
     Active Substance: IPRATROPIUM
  15. MUCINEX [Concomitant]
     Active Substance: GUAIFENESIN
  16. ALBUTEROL. [Concomitant]
     Active Substance: ALBUTEROL
  17. DIPHENHYDRAMINE. [Concomitant]
     Active Substance: DIPHENHYDRAMINE
  18. NYSTATIN. [Concomitant]
     Active Substance: NYSTATIN
  19. GLUCOSAMINE [Concomitant]
     Active Substance: GLUCOSAMINE
  20. DUONEB [Concomitant]
     Active Substance: ALBUTEROL SULFATE\IPRATROPIUM BROMIDE

REACTIONS (1)
  - Sinusitis [Unknown]
